FAERS Safety Report 14882496 (Version 6)
Quarter: 2018Q3

REPORT INFORMATION
  Report Type: Spontaneous
  Country: CA (occurrence: CA)
  Receive Date: 20180511
  Receipt Date: 20180917
  Transmission Date: 20181010
  Serious: Yes (Hospitalization, Other)
  Sender: FDA-Public Use
  Company Number: CA-CELLTRION INC.-2018CA019162

PATIENT

DRUGS (19)
  1. INFLECTRA [Suspect]
     Active Substance: INFLIXIMAB-DYYB
     Dosage: 500 MG, CYCLIC (EVERY 0, 2, 6 WEEKS, THEN EVERY 8 WEEKS
     Route: 042
     Dates: start: 20180403
  2. ENTYVIO [Concomitant]
     Active Substance: VEDOLIZUMAB
     Dosage: UNK
  3. VITALUX                            /00322001/ [Concomitant]
     Dosage: UNK
  4. MELATONIN [Concomitant]
     Active Substance: MELATONIN
     Dosage: UNK
  5. ONDISSOLVE [Concomitant]
     Dosage: UNK
  6. INFLECTRA [Suspect]
     Active Substance: INFLIXIMAB-DYYB
     Indication: COLITIS ULCERATIVE
     Dosage: 500 MG, CYCLIC (EVERY 0, 2, 6 WEEKS, THEN EVERY 8 WEEKS
     Route: 042
     Dates: start: 20180319
  7. VITAMIN D                          /00107901/ [Concomitant]
     Active Substance: ERGOCALCIFEROL
     Dosage: UNK
  8. SYMBICORT [Concomitant]
     Active Substance: BUDESONIDE\FORMOTEROL FUMARATE DIHYDRATE
     Dosage: UNK
  9. PROBIOTICS                         /07325001/ [Concomitant]
     Active Substance: BIFIDOBACTERIUM LONGUM\LACTOBACILLUS ACIDOPHILUS\LACTOBACILLUS RHAMNOSUS
     Dosage: UNK
  10. ASACOL [Concomitant]
     Active Substance: MESALAMINE
     Dosage: UNK
  11. ASA [Concomitant]
     Active Substance: ASPIRIN
     Dosage: UNK
  12. TYLENOL EXTRA STRENGTH [Concomitant]
     Active Substance: ACETAMINOPHEN
     Dosage: UNK
  13. CALCIUM [Concomitant]
     Active Substance: CALCIUM
     Dosage: UNK
  14. INFLECTRA [Suspect]
     Active Substance: INFLIXIMAB-DYYB
     Dosage: 500 MG, CYCLIC (EVERY 0, 2, 6 WEEKS, THEN EVERY 8 WEEKS
     Route: 042
     Dates: start: 20180403
  15. INFLECTRA [Suspect]
     Active Substance: INFLIXIMAB-DYYB
     Dosage: 500 MG, CYCLIC (EVERY 0, 2, 6 WEEKS, THEN EVERY 8 WEEKS
     Route: 042
     Dates: start: 20180625
  16. PREDNISONE. [Concomitant]
     Active Substance: PREDNISONE
     Dosage: UNK
  17. COVERSYL                           /00790702/ [Concomitant]
     Active Substance: PERINDOPRIL
     Dosage: UNK
  18. INFLECTRA [Suspect]
     Active Substance: INFLIXIMAB-DYYB
     Dosage: 500 MG, CYCLIC (EVERY 0, 2, 6 WEEKS, THEN EVERY 8 WEEKS
     Route: 042
     Dates: start: 20180501
  19. ONDANSETRON [Concomitant]
     Active Substance: ONDANSETRON
     Dosage: UNK

REACTIONS (17)
  - Heart rate irregular [Unknown]
  - Blood pressure systolic increased [Unknown]
  - Blood potassium increased [Unknown]
  - Mucous stools [Not Recovered/Not Resolved]
  - Blood pressure fluctuation [Unknown]
  - Musculoskeletal stiffness [Unknown]
  - Chest discomfort [Recovering/Resolving]
  - Arthralgia [Unknown]
  - Clostridium difficile infection [Not Recovered/Not Resolved]
  - Hyperchlorhydria [Unknown]
  - Muscle spasms [Not Recovered/Not Resolved]
  - Chest pain [Recovering/Resolving]
  - Back pain [Recovering/Resolving]
  - Dizziness [Recovered/Resolved]
  - Haematochezia [Not Recovered/Not Resolved]
  - White blood cell count increased [Unknown]
  - Oxygen saturation abnormal [Unknown]

NARRATIVE: CASE EVENT DATE: 20180319
